FAERS Safety Report 7371259-6 (Version None)
Quarter: 2011Q1

REPORT INFORMATION
  Report Type: 
  Country: None (occurrence: None)
  Receive Date: 20110321
  Receipt Date: 20110321
  Transmission Date: 20110831
  Serious: No
  Sender: FDA-Public Use
  Company Number: None

PATIENT
  Age: 49 Year
  Sex: Female
  Weight: 63.5036 kg

DRUGS (2)
  1. LEVAQUIN [Suspect]
     Dosage: 750 MG 1 PER DAY PO
     Route: 048
     Dates: start: 20110209, end: 20110224
  2. LEVAQUIN [Suspect]
     Indication: PNEUMONIA
     Dosage: 5 DAYS IN HOSPITAL DRIP IV DRIP
     Route: 041
     Dates: start: 20110205, end: 20110209

REACTIONS (2)
  - ARTHROPATHY [None]
  - MUSCULAR WEAKNESS [None]
